FAERS Safety Report 5883309-4 (Version None)
Quarter: 2008Q3

REPORT INFORMATION
  Report Type: 
  Country: None (occurrence: None)
  Receive Date: 20080915
  Receipt Date: 20080910
  Transmission Date: 20090109
  Serious: Yes (Hospitalization, Other)
  Sender: FDA-Public Use
  Company Number: US-BRISTOL-MYERS SQUIBB COMPANY-14331169

PATIENT
  Age: 7 Year
  Sex: Male

DRUGS (3)
  1. SUSTIVA [Suspect]
     Indication: HIV INFECTION
     Dates: start: 20020101, end: 20080101
  2. VIDEX [Suspect]
     Indication: HIV INFECTION
     Dates: start: 20020101, end: 20080101
  3. ABACAVIR [Suspect]
     Indication: HIV INFECTION
     Dates: start: 20020101, end: 20080101

REACTIONS (2)
  - HEPATIC ENZYME INCREASED [None]
  - IDIOPATHIC THROMBOCYTOPENIC PURPURA [None]
